FAERS Safety Report 23679587 (Version 6)
Quarter: 2024Q4

REPORT INFORMATION
  Report Type: Report from Study
  Country: US (occurrence: US)
  Receive Date: 20240327
  Receipt Date: 20241021
  Transmission Date: 20250115
  Serious: Yes (Other)
  Sender: ABBVIE
  Company Number: US-ABBVIE-5652380

PATIENT
  Sex: Female

DRUGS (4)
  1. HUMIRA [Suspect]
     Active Substance: ADALIMUMAB
     Indication: Hidradenitis
     Dosage: FORM STRENGTH: 40 MILLIGRAM?LAST ADMIN DATE: 2024
     Route: 058
     Dates: start: 20240206
  2. HUMIRA [Suspect]
     Active Substance: ADALIMUMAB
     Dosage: FORM STRENGTH: 40 MILLIGRAM
     Route: 058
     Dates: start: 20210901
  3. HUMIRA [Suspect]
     Active Substance: ADALIMUMAB
     Dosage: FORM STRENGTH: 40 MILLIGRAM?FIRST ADMIN DATE: 2024
     Route: 058
     Dates: end: 20240901
  4. NOVOCAIN [Concomitant]
     Active Substance: PROCAINE HYDROCHLORIDE
     Indication: Product used for unknown indication

REACTIONS (21)
  - Systemic lupus erythematosus [Recovering/Resolving]
  - COVID-19 pneumonia [Not Recovered/Not Resolved]
  - Illness [Recovered/Resolved]
  - Pain [Unknown]
  - Injection site pain [Recovering/Resolving]
  - Alopecia [Unknown]
  - Productive cough [Unknown]
  - Wound complication [Recovering/Resolving]
  - Hidradenitis [Recovering/Resolving]
  - Pain [Not Recovered/Not Resolved]
  - Weight decreased [Recovering/Resolving]
  - Groin pain [Recovering/Resolving]
  - Mucosal discolouration [Unknown]
  - Cyst [Recovering/Resolving]
  - Pruritus [Unknown]
  - Gait disturbance [Unknown]
  - Dental operation [Unknown]
  - Feeling abnormal [Unknown]
  - Tooth loss [Unknown]
  - Drug ineffective [Unknown]
  - Hidradenitis [Unknown]

NARRATIVE: CASE EVENT DATE: 20240101
